FAERS Safety Report 25906560 (Version 2)
Quarter: 2025Q4

REPORT INFORMATION
  Report Type: Spontaneous
  Country: US (occurrence: US)
  Receive Date: 20251010
  Receipt Date: 20251021
  Transmission Date: 20260118
  Serious: No
  Sender: ROCHE
  Company Number: US-ROCHE-10000400621

PATIENT
  Sex: Female
  Weight: 79.38 kg

DRUGS (10)
  1. OCREVUS ZUNOVO [Suspect]
     Active Substance: HYALURONIDASE-OCSQ\OCRELIZUMAB
     Indication: Relapsing-remitting multiple sclerosis
     Route: 058
     Dates: start: 202509
  2. OCREVUS [Suspect]
     Active Substance: OCRELIZUMAB
     Indication: Relapsing-remitting multiple sclerosis
     Route: 042
     Dates: start: 2022, end: 2023
  3. DIAZEPAM [Suspect]
     Active Substance: DIAZEPAM
     Indication: Anxiety
     Route: 065
  4. TRAMADOL HCL [Concomitant]
     Active Substance: TRAMADOL HYDROCHLORIDE
     Indication: Breakthrough pain
     Route: 048
  5. MYRBETRIQ [Concomitant]
     Active Substance: MIRABEGRON
     Route: 048
  6. CYMBALTA [Concomitant]
     Active Substance: DULOXETINE HYDROCHLORIDE
     Indication: Depression
     Route: 048
  7. TRAMADOL HCL ER [Concomitant]
     Indication: Back pain
     Dosage: EVERY 12 HOUR
  8. BACLOFEN [Concomitant]
     Active Substance: BACLOFEN
     Route: 048
  9. AMPYRA [Concomitant]
     Active Substance: DALFAMPRIDINE
     Route: 048
  10. RITALIN [Concomitant]
     Active Substance: METHYLPHENIDATE HYDROCHLORIDE
     Route: 048

REACTIONS (10)
  - Contusion [Unknown]
  - Sensitive skin [Unknown]
  - Fatigue [Unknown]
  - Spinal disorder [Unknown]
  - Dysstasia [Unknown]
  - Osteoporosis [Unknown]
  - Osteopenia [Unknown]
  - Swelling [Not Recovered/Not Resolved]
  - Injection site erythema [Recovered/Resolved]
  - Pruritus [Recovered/Resolved]
